FAERS Safety Report 7293842-9 (Version None)
Quarter: 2011Q1

REPORT INFORMATION
  Report Type: 
  Country: None (occurrence: None)
  Receive Date: 20110215
  Receipt Date: 20110207
  Transmission Date: 20110831
  Serious: Yes (Other)
  Sender: FDA-Public Use
  Company Number: DE-PFIZER INC-2011030197

PATIENT
  Age: 63 Year
  Sex: Male

DRUGS (1)
  1. ARGATROBAN [Suspect]
     Route: 041

REACTIONS (1)
  - TRANSAMINASES INCREASED [None]
